FAERS Safety Report 7511214-6 (Version None)
Quarter: 2011Q2

REPORT INFORMATION
  Report Type: 
  Country: None (occurrence: None)
  Receive Date: 20110531
  Receipt Date: 20090809
  Transmission Date: 20111010
  Serious: Yes (Other)
  Sender: FDA-Public Use
  Company Number: US-BAYER-200929364NA

PATIENT
  Age: 66 Year
  Sex: Male
  Weight: 98 kg

DRUGS (13)
  1. PLAVIX [Concomitant]
     Dosage: 75 MG, QD
     Route: 048
  2. TRASYLOL [Suspect]
     Indication: CORONARY ARTERY BYPASS
     Dosage: 1 ML, INITIAL DOSE
     Route: 042
     Dates: start: 20050124, end: 20050124
  3. COREG [Concomitant]
     Dosage: 3.125 MG, QD
     Route: 048
  4. LIPITOR [Concomitant]
     Dosage: 40 MG, QD
     Route: 048
     Dates: start: 20000101
  5. NOVOLIN N [Concomitant]
     Dosage: 66 U, QD EVERY MORNING
  6. TRASYLOL [Suspect]
     Dosage: 100 ML LOADING DOSE
     Route: 042
     Dates: start: 20050124, end: 20050124
  7. LANOXIN [Concomitant]
     Dosage: 0.125 MG, QD
     Route: 048
  8. NOVOLIN N [Concomitant]
  9. NOVOLIN N [Concomitant]
     Dosage: 56 U EVERY EVENING
     Dates: start: 20000101
  10. ACETYLSALICYLIC ACID SRT [Concomitant]
     Dosage: 81 MG, QD
     Route: 048
  11. CEFUROXIME [Concomitant]
     Dosage: 1.5 G, UNK
     Route: 042
     Dates: start: 20050124, end: 20050124
  12. HEPARIN [Concomitant]
     Dosage: 10 U, PER KILOGRAMS OF DOSING WEIGHT
     Route: 042
     Dates: start: 20050124, end: 20050124
  13. AMIODARONE HCL [Concomitant]
     Dosage: 200 MG, QD
     Route: 048

REACTIONS (10)
  - RENAL INJURY [None]
  - RENAL IMPAIRMENT [None]
  - INJURY [None]
  - FEAR [None]
  - PAIN [None]
  - STRESS [None]
  - UNEVALUABLE EVENT [None]
  - RENAL FAILURE [None]
  - EMOTIONAL DISTRESS [None]
  - ANXIETY [None]
